FAERS Safety Report 8794505 (Version 1)
Quarter: 2012Q4

REPORT INFORMATION
  Report Type: Report from Study
  Country: JP (occurrence: JP)
  Receive Date: 20120917
  Receipt Date: 20120917
  Transmission Date: 20130627
  Serious: Yes (Hospitalization)
  Sender: FDA-Public Use
  Company Number: PHHY2010JP56881

PATIENT
  Age: 78 Year
  Sex: Female

DRUGS (9)
  1. AMN107 [Suspect]
     Indication: CHRONIC MYELOID LEUKAEMIA
     Dosage: 400 mg/daily
     Route: 048
     Dates: start: 20100514, end: 20100707
  2. AMN107 [Suspect]
     Dosage: 400 mg/day
     Route: 048
     Dates: start: 20100807
  3. OLMETEC [Concomitant]
     Indication: HYPERTENSION
     Dosage: 20 mg,
     Route: 048
     Dates: start: 20080111
  4. ULCERLMIN [Concomitant]
     Indication: GASTRITIS
     Dosage: 3 g
     Route: 048
     Dates: start: 20060119
  5. MAGMITT [Concomitant]
     Indication: CONSTIPATION
     Dosage: 660 mg
     Route: 048
     Dates: start: 20050625
  6. PARIET [Concomitant]
     Indication: GASTRIC ULCER
     Dosage: 10 mg
     Route: 048
     Dates: start: 20100112
  7. LOXONIN [Concomitant]
     Dosage: 60 mg
     Route: 048
     Dates: start: 20090811
  8. TAKEPRON [Concomitant]
     Dosage: 30 mg
     Route: 048
     Dates: start: 20050623, end: 20061124
  9. ALLOID [Concomitant]
     Dosage: 40 mg
     Route: 048
     Dates: start: 20050621, end: 20050817

REACTIONS (1)
  - Haematotoxicity [Recovering/Resolving]
